FAERS Safety Report 10178524 (Version 1)
Quarter: 2014Q2

REPORT INFORMATION
  Report Type: Spontaneous
  Country: DE (occurrence: DE)
  Receive Date: 20140519
  Receipt Date: 20140519
  Transmission Date: 20141212
  Serious: Yes (Other)
  Sender: FDA-Public Use
  Company Number: DE-JNJFOC-20140505056

PATIENT
  Age: 6 Year
  Sex: Male

DRUGS (9)
  1. DOXORUBICIN [Suspect]
     Indication: NEUROBLASTOMA
     Route: 042
  2. CYCLOPHOSPHAMID [Suspect]
     Indication: NEUROBLASTOMA
     Route: 065
  3. TMZ (TETRAMISOLE) [Suspect]
     Indication: NEUROBLASTOMA
     Route: 065
  4. DTIC [Suspect]
     Indication: NEUROBLASTOMA
     Route: 065
  5. IFOSFAMIDE [Suspect]
     Indication: NEUROBLASTOMA
     Route: 065
  6. VP-16 [Suspect]
     Indication: NEUROBLASTOMA
     Route: 065
  7. CBDCA [Suspect]
     Indication: NEUROBLASTOMA
     Route: 065
  8. CDDP [Suspect]
     Indication: NEUROBLASTOMA
     Route: 065
  9. TOPOTECAN [Suspect]
     Indication: NEUROBLASTOMA
     Route: 065

REACTIONS (5)
  - Optic atrophy [Unknown]
  - Mucosal inflammation [Unknown]
  - Febrile neutropenia [Unknown]
  - Deafness [Unknown]
  - Off label use [Unknown]
